FAERS Safety Report 4681158-6 (Version None)
Quarter: 2005Q2

REPORT INFORMATION
  Report Type: 
  Country: None (occurrence: None)
  Receive Date: 20050602
  Receipt Date: 20050523
  Transmission Date: 20051028
  Serious: Yes (Hospitalization, Other)
  Sender: FDA-Public Use
  Company Number: 2005-05-1949

PATIENT
  Sex: Female

DRUGS (1)
  1. DR. SCHOLL'S CORN REMOVERS DISC [Suspect]
     Indication: HYPERKERATOSIS
     Dosage: TOPICAL
     Route: 061

REACTIONS (2)
  - OSTEOMYELITIS [None]
  - SKIN ULCER [None]
